FAERS Safety Report 6077920-8 (Version None)
Quarter: 2009Q1

REPORT INFORMATION
  Report Type: 
  Country: None (occurrence: None)
  Receive Date: 20090213
  Receipt Date: 20090202
  Transmission Date: 20090719
  Serious: Yes (Death)
  Sender: FDA-Public Use
  Company Number: US-ROCHE-612330

PATIENT

DRUGS (4)
  1. MYCOPHENOLATE MOFETIL [Suspect]
     Indication: LUPUS NEPHRITIS
     Route: 048
  2. MYCOPHENOLATE MOFETIL [Suspect]
     Dosage: DOSE INCREASED TO A TARGET DOSE OF 3 G/DAY BY WEEK 3
     Route: 048
  3. PREDNISONE [Concomitant]
  4. PREDNISONE [Concomitant]
     Dosage: TAPERED

REACTIONS (1)
  - DEATH [None]
